FAERS Safety Report 21103096 (Version 1)
Quarter: 2022Q3

REPORT INFORMATION
  Report Type: Spontaneous
  Country: US (occurrence: US)
  Receive Date: 20220720
  Receipt Date: 20220720
  Transmission Date: 20221027
  Serious: No
  Sender: FDA-Public Use
  Company Number: US-CIPLA LTD.-2021US05140

PATIENT
  Age: 68 Year
  Sex: Female

DRUGS (4)
  1. TERBINAFINE [Suspect]
     Active Substance: TERBINAFINE
     Indication: Onychomycosis
     Dosage: UNK
     Route: 065
     Dates: start: 20210428, end: 2021
  2. NAPROXEN [Concomitant]
     Active Substance: NAPROXEN
     Indication: Back injury
     Dosage: UNK, PRN (AS NEEDED)
     Route: 065
  3. VITAMINS NOS [Concomitant]
     Active Substance: VITAMINS
     Indication: Hair disorder
     Dosage: UNK, BID
     Route: 065
  4. VITAMINS NOS [Concomitant]
     Active Substance: VITAMINS
     Indication: Skin disorder

REACTIONS (5)
  - Alopecia [Recovering/Resolving]
  - Insomnia [Unknown]
  - Nail growth abnormal [Not Recovered/Not Resolved]
  - Taste disorder [Not Recovered/Not Resolved]
  - Anxiety [Recovering/Resolving]

NARRATIVE: CASE EVENT DATE: 20210101
